FAERS Safety Report 20112558 (Version 1)
Quarter: 2021Q4

REPORT INFORMATION
  Report Type: Spontaneous
  Country: US (occurrence: US)
  Receive Date: 20211125
  Receipt Date: 20211125
  Transmission Date: 20220304
  Serious: Yes (Other)
  Sender: FDA-Public Use
  Company Number: US-NOVARTISPH-NVSC2021US266484

PATIENT
  Age: 46 Year
  Sex: Female

DRUGS (2)
  1. RANITIDINE [Suspect]
     Active Substance: RANITIDINE
     Indication: Corrosive gastritis
     Dosage: 150 MG, QW
     Route: 065
     Dates: start: 201201, end: 201401
  2. RANITIDINE [Suspect]
     Active Substance: RANITIDINE
     Indication: Corrosive gastritis
     Dosage: 150 MG, QW
     Route: 065
     Dates: start: 201201, end: 201401

REACTIONS (2)
  - Lung carcinoma cell type unspecified stage III [Recovering/Resolving]
  - Product use in unapproved indication [Unknown]

NARRATIVE: CASE EVENT DATE: 20170601
